FAERS Safety Report 4786669-0 (Version None)
Quarter: 2005Q3

REPORT INFORMATION
  Report Type: 
  Country: None (occurrence: None)
  Receive Date: 20050930
  Receipt Date: 20050915
  Transmission Date: 20060218
  Serious: Yes (Hospitalization)
  Sender: FDA-Public Use
  Company Number: 2005US000919

PATIENT
  Age: 65 Year
  Sex: Female

DRUGS (18)
  1. PROGRAF [Suspect]
     Indication: PROPHYLAXIS AGAINST TRANSPLANT REJECTION
     Dosage: 4.00 MG, TID, ORAL
     Route: 048
     Dates: start: 20050621
  2. MYCOPHENOLATE MOFETIL(MYCOPHENOLATE MOFETIL) [Suspect]
     Indication: PROPHYLAXIS AGAINST TRANSPLANT REJECTION
     Dosage: SEE IMAGE
     Route: 042
     Dates: start: 20050621, end: 20050621
  3. MYCOPHENOLATE MOFETIL(MYCOPHENOLATE MOFETIL) [Suspect]
     Indication: PROPHYLAXIS AGAINST TRANSPLANT REJECTION
     Dosage: SEE IMAGE
     Route: 042
     Dates: start: 20050627
  4. SOLU-MEDROL [Suspect]
     Indication: PROPHYLAXIS AGAINST TRANSPLANT REJECTION
     Dosage: 500.00 MG, TOTAL DOSE, IV NOS
     Route: 042
     Dates: start: 20050621
  5. ANTITHYMOCYTE IMMUNOGLOBULIN(ANTITHYMOCYTE IMMUGLOBULIN) [Suspect]
     Indication: PROPHYLAXIS AGAINST TRANSPLANT REJECTION
     Dosage: 100.00 MG, UID/QD, IV NOS
     Route: 042
  6. AMLODIPINE [Concomitant]
  7. ACETAMINOPHEN [Concomitant]
  8. DIPHENHYDRAMINE HCL [Concomitant]
  9. DOLASETRON MESILATE (DOLASETRON MESILATE) [Concomitant]
  10. HYDROMORPHONE HCL [Concomitant]
  11. METOPROLOL TARTRATE [Concomitant]
  12. MORPHINE [Concomitant]
  13. NYSTATIN [Concomitant]
  14. INSULIN [Concomitant]
  15. PANTOPRAZOLE SODIUM [Concomitant]
  16. SULFAMETHOXAZOLE + TRIMETHOPRIM [Concomitant]
  17. VALGANCICLOVIR (VALGANCICLOVIR) [Concomitant]
  18. REGLAN /USA/(METOCLOPRAMIDE HYDROCHLORIDE) [Concomitant]

REACTIONS (10)
  - ANAEMIA [None]
  - ARTERIAL HAEMORRHAGE [None]
  - DECREASED APPETITE [None]
  - DEEP VEIN THROMBOSIS [None]
  - FEMORAL PULSE ABNORMAL [None]
  - IATROGENIC INJURY [None]
  - ILIAC ARTERY THROMBOSIS [None]
  - NAUSEA [None]
  - OEDEMA PERIPHERAL [None]
  - PERIPHERAL ISCHAEMIA [None]
